FAERS Safety Report 8445408-2 (Version None)
Quarter: 2012Q2

REPORT INFORMATION
  Report Type: 
  Country: None (occurrence: None)
  Receive Date: 20120611
  Receipt Date: 20120529
  Transmission Date: 20120825
  Serious: Yes (Hospitalization)
  Sender: FDA-Public Use
  Company Number: JPI-P-020065

PATIENT
  Age: 50 Year
  Sex: Female
  Weight: 83.0083 kg

DRUGS (2)
  1. XYREM [Suspect]
     Indication: NARCOLEPSY
     Dosage: 4.5 GM (2.25 GM, 2 IN 1 D), ORAL 6 GM (3 GM, 2 IN 1 D), ORAL
     Route: 048
     Dates: start: 20091106
  2. XYREM [Suspect]
     Indication: NARCOLEPSY
     Dosage: 4.5 GM (2.25 GM, 2 IN 1 D), ORAL 6 GM (3 GM, 2 IN 1 D), ORAL
     Route: 048
     Dates: start: 20091127

REACTIONS (26)
  - OESOPHAGEAL DISORDER [None]
  - INFLAMMATION [None]
  - MUSCULOSKELETAL PAIN [None]
  - SINUS CONGESTION [None]
  - POST-TRAUMATIC NECK SYNDROME [None]
  - LIGAMENT SPRAIN [None]
  - TOOTH FRACTURE [None]
  - GASTRITIS [None]
  - WEIGHT DECREASED [None]
  - JOINT INJURY [None]
  - SINUSITIS [None]
  - BACK PAIN [None]
  - BILIARY TRACT DISORDER [None]
  - DECREASED APPETITE [None]
  - PYREXIA [None]
  - CHILLS [None]
  - MIGRAINE [None]
  - MALAISE [None]
  - COUGH [None]
  - ROAD TRAFFIC ACCIDENT [None]
  - PAIN IN EXTREMITY [None]
  - HYPERHIDROSIS [None]
  - INCREASED UPPER AIRWAY SECRETION [None]
  - ASTHENIA [None]
  - ARTHRALGIA [None]
  - NECK PAIN [None]
